FAERS Safety Report 7620066-5 (Version None)
Quarter: 2011Q3

REPORT INFORMATION
  Report Type: 
  Country: None (occurrence: None)
  Receive Date: 20110719
  Receipt Date: 20110713
  Transmission Date: 20111222
  Serious: Yes (Other)
  Sender: FDA-Public Use
  Company Number: US-PFIZER INC-2011158885

PATIENT
  Sex: Female
  Weight: 57 kg

DRUGS (3)
  1. LASIX [Concomitant]
     Dosage: UNK
  2. TORISEL [Suspect]
     Indication: RENAL CELL CARCINOMA
     Dosage: UNK, WEEKLY
     Route: 042
     Dates: start: 20110228
  3. LEVOXYL [Concomitant]
     Indication: THYROID DISORDER
     Dosage: UNK

REACTIONS (7)
  - POLLAKIURIA [None]
  - DECREASED APPETITE [None]
  - CANDIDIASIS [None]
  - HYPERHIDROSIS [None]
  - PYREXIA [None]
  - MUSCLE SPASMS [None]
  - DRY MOUTH [None]
